FAERS Safety Report 9872230 (Version 1)
Quarter: 2014Q1

REPORT INFORMATION
  Report Type: Spontaneous
  Country: US (occurrence: US)
  Receive Date: 20140205
  Receipt Date: 20140205
  Transmission Date: 20141002
  Serious: No
  Sender: FDA-Public Use
  Company Number: US-ALLERGAN-1306078US

PATIENT
  Age: 43 Year
  Sex: Female

DRUGS (3)
  1. BOTOX [Suspect]
     Indication: SKIN WRINKLING
     Dosage: UNK, SINGLE
     Route: 030
     Dates: start: 20130403, end: 20130403
  2. JUVEDERM ULTRA PLUS XC [Suspect]
     Indication: SKIN WRINKLING
     Dosage: UNK
     Dates: start: 20130403, end: 20130403
  3. SCULPTRA [Suspect]
     Indication: SKIN WRINKLING
     Dosage: UNK, SINGLE
     Route: 023
     Dates: start: 20130403, end: 20130403

REACTIONS (1)
  - Swelling [Recovered/Resolved]
